FAERS Safety Report 23211048 (Version 2)
Quarter: 2024Q1

REPORT INFORMATION
  Report Type: Spontaneous
  Country: US (occurrence: US)
  Receive Date: 20231121
  Receipt Date: 20240123
  Transmission Date: 20240410
  Serious: No
  Sender: FDA-Public Use
  Company Number: US-KARYOPHARM-2023KPT001967

PATIENT

DRUGS (6)
  1. XPOVIO [Suspect]
     Active Substance: SELINEXOR
     Indication: Plasma cell myeloma
     Dosage: 60 MG, WEEKLY
     Route: 048
     Dates: start: 20230125
  2. DECADRON [Concomitant]
     Active Substance: DEXAMETHASONE
  3. OLANZAPINE [Concomitant]
     Active Substance: OLANZAPINE
  4. OXYBUTYNIN [Concomitant]
     Active Substance: OXYBUTYNIN\OXYBUTYNIN CHLORIDE
  5. PROCHLORPERAZINE [Concomitant]
     Active Substance: PROCHLORPERAZINE
  6. ZOFRAN [Concomitant]
     Active Substance: ONDANSETRON HYDROCHLORIDE

REACTIONS (3)
  - Asthenia [Unknown]
  - Fatigue [Unknown]
  - Anaemia [Unknown]

NARRATIVE: CASE EVENT DATE: 20230101
